FAERS Safety Report 23292791 (Version 1)
Quarter: 2023Q4

REPORT INFORMATION
  Report Type: Spontaneous
  Country: US (occurrence: None)
  Receive Date: 20231212
  Receipt Date: 20231212
  Transmission Date: 20240110
  Serious: Yes (Life-Threatening)
  Sender: FDA-Public Use
  Company Number: None

PATIENT
  Sex: Female

DRUGS (1)
  1. AYGESTIN [Suspect]
     Active Substance: NORETHINDRONE ACETATE
     Dosage: FREQUENCY : TWICE A DAY;?

REACTIONS (4)
  - Headache [None]
  - Dizziness [None]
  - Condition aggravated [None]
  - Loss of consciousness [None]

NARRATIVE: CASE EVENT DATE: 20231108
